FAERS Safety Report 9851306 (Version 2)
Quarter: 2014Q1

REPORT INFORMATION
  Report Type: Spontaneous
  Country: AU (occurrence: AU)
  Receive Date: 20140129
  Receipt Date: 20140204
  Transmission Date: 20141002
  Serious: Yes (Other)
  Sender: FDA-Public Use
  Company Number: AU-PFIZER INC-2014020617

PATIENT
  Age: 64 Year
  Sex: Male

DRUGS (5)
  1. PAMIDRONATE DISODIUM [Suspect]
     Indication: PLASMA CELL MYELOMA
     Dosage: 90 MG, MONTHLY
  2. ZOLEDRONIC ACID [Suspect]
     Indication: PLASMA CELL MYELOMA
     Dosage: 4 MG, MONTHLY
  3. DEXAMETHASONE [Concomitant]
     Indication: PLASMA CELL MYELOMA
     Dosage: 40 MG/D 4 D EACH MONTH
  4. LENALIDOMIDE [Concomitant]
     Indication: PLASMA CELL MYELOMA
     Dosage: 15 MG, DAILY
  5. INTERFERON ALFA [Concomitant]
     Indication: PLASMA CELL MYELOMA
     Dosage: UNK

REACTIONS (3)
  - Osteonecrosis of jaw [Recovering/Resolving]
  - Osteonecrosis [Recovering/Resolving]
  - Exostosis of external ear canal [Unknown]
